FAERS Safety Report 4565620-2 (Version None)
Quarter: 2005Q1

REPORT INFORMATION
  Report Type: 
  Country: None (occurrence: None)
  Receive Date: 20050126
  Receipt Date: 20050112
  Transmission Date: 20050727
  Serious: Yes (Life-Threatening)
  Sender: FDA-Public Use
  Company Number: SUS1-2005-00026

PATIENT
  Age: 15 Year
  Sex: Female

DRUGS (1)
  1. ADDERALL XR(DETROAMPHETAMINE SULFATE, DEXTROAMPHETAMINE SACCHARATE, AM [Suspect]
     Indication: ATTENTION DEFICIT/HYPERACTIVITY DISORDER

REACTIONS (2)
  - IRRITABILITY [None]
  - OVERDOSE [None]
